FAERS Safety Report 19358065 (Version 2)
Quarter: 2021Q2

REPORT INFORMATION
  Report Type: Report from Study
  Country: BR (occurrence: BR)
  Receive Date: 20210601
  Receipt Date: 20210604
  Transmission Date: 20210717
  Serious: Yes (Other)
  Sender: FDA-Public Use
  Company Number: BR-TEVA-2021-BR-1918840

PATIENT
  Age: 31 Year
  Sex: Male

DRUGS (2)
  1. VITAMIN D [Concomitant]
     Active Substance: VITAMIN D NOS
  2. COPAXONE [Suspect]
     Active Substance: GLATIRAMER ACETATE
     Indication: MULTIPLE SCLEROSIS
     Route: 065
     Dates: start: 20210523

REACTIONS (19)
  - Gait inability [Recovered/Resolved]
  - Malaise [Recovered/Resolved]
  - Peripheral coldness [Recovered/Resolved]
  - Visual impairment [Recovered/Resolved]
  - Tremor [Recovered/Resolved]
  - Nausea [Recovered/Resolved]
  - Hyperhidrosis [Recovered/Resolved]
  - Paraesthesia [Not Recovered/Not Resolved]
  - Abdominal discomfort [Not Recovered/Not Resolved]
  - Dyspnoea [Recovered/Resolved]
  - Loss of consciousness [Recovered/Resolved]
  - Application site pain [Recovered/Resolved]
  - Dizziness [Recovered/Resolved]
  - Abdominal distension [Not Recovered/Not Resolved]
  - Feeling hot [Recovered/Resolved]
  - Rhinitis [Recovered/Resolved]
  - Gastritis [Recovered/Resolved]
  - Injection site pain [Not Recovered/Not Resolved]
  - Asthenia [Recovered/Resolved]

NARRATIVE: CASE EVENT DATE: 20210525
